FAERS Safety Report 14457261 (Version 3)
Quarter: 2018Q2

REPORT INFORMATION
  Report Type: Report from Study
  Country: US (occurrence: US)
  Receive Date: 20180130
  Receipt Date: 20180413
  Transmission Date: 20180711
  Serious: Yes (Hospitalization)
  Sender: FDA-Public Use
  Company Number: US-JNJFOC-20171033201

PATIENT
  Age: 81 Year
  Sex: Female

DRUGS (2)
  1. IMBRUVICA [Suspect]
     Active Substance: IBRUTINIB
     Indication: CHRONIC LYMPHOCYTIC LEUKAEMIA
     Route: 048
     Dates: start: 20161003
  2. IMBRUVICA [Suspect]
     Active Substance: IBRUTINIB
     Indication: CHRONIC LYMPHOCYTIC LEUKAEMIA
     Route: 048
     Dates: start: 20161007

REACTIONS (9)
  - Limb injury [Unknown]
  - Thermal burn [Unknown]
  - Eye irritation [Unknown]
  - Peripheral swelling [Recovering/Resolving]
  - Eye swelling [Unknown]
  - Fatigue [Unknown]
  - Contusion [Recovering/Resolving]
  - Cataract [Unknown]
  - Road traffic accident [Unknown]

NARRATIVE: CASE EVENT DATE: 20171013
